FAERS Safety Report 11929808 (Version 1)
Quarter: 2016Q1

REPORT INFORMATION
  Report Type: Spontaneous
  Country: US (occurrence: US)
  Receive Date: 20160120
  Receipt Date: 20160120
  Transmission Date: 20160526
  Serious: No
  Sender: FDA-Public Use
  Company Number: US-SHIRE-US201600447

PATIENT
  Age: 12 Year
  Sex: Female

DRUGS (2)
  1. VPRIV [Suspect]
     Active Substance: VELAGLUCERASE ALFA
     Indication: GAUCHER^S DISEASE
     Dosage: 2400 IU, 1X/2WKS
     Route: 041
  2. VPRIV [Suspect]
     Active Substance: VELAGLUCERASE ALFA
     Dosage: UNK, UNKNOWN
     Route: 041
     Dates: start: 20121210

REACTIONS (1)
  - Infusion site erythema [Recovered/Resolved]

NARRATIVE: CASE EVENT DATE: 20160112
